FAERS Safety Report 14918954 (Version 1)
Quarter: 2018Q2

REPORT INFORMATION
  Report Type: Spontaneous
  Country: US (occurrence: US)
  Receive Date: 20180502
  Receipt Date: 20180502
  Transmission Date: 20180711
  Serious: Yes (Hospitalization)
  Sender: FDA-Public Use
  Company Number: None

PATIENT
  Age: 63 Year
  Sex: Male
  Weight: 72 kg

DRUGS (1)
  1. NIVOLUMAB [Suspect]
     Active Substance: NIVOLUMAB
     Indication: HEPATOCELLULAR CARCINOMA
     Route: 042
     Dates: start: 20171030

REACTIONS (9)
  - Rash [None]
  - Toxicity to various agents [None]
  - Peritonitis bacterial [None]
  - Fatigue [None]
  - Diverticulitis [None]
  - Pyrexia [None]
  - Abdominal pain [None]
  - Ascites [None]
  - Chromaturia [None]

NARRATIVE: CASE EVENT DATE: 20180309
